FAERS Safety Report 7694441-7 (Version None)
Quarter: 2011Q3

REPORT INFORMATION
  Report Type: 
  Country: None (occurrence: None)
  Receive Date: 20110819
  Receipt Date: 20110805
  Transmission Date: 20111222
  Serious: Yes (Other)
  Sender: FDA-Public Use
  Company Number: PHHY2011BR71093

PATIENT
  Sex: Female

DRUGS (1)
  1. RASILEZ [Suspect]

REACTIONS (4)
  - NEOPLASM MALIGNANT [None]
  - HYPOTHYROIDISM [None]
  - DIABETES MELLITUS [None]
  - HYPERTENSION [None]
